FAERS Safety Report 8353430-X (Version None)
Quarter: 2012Q2

REPORT INFORMATION
  Report Type: 
  Country: None (occurrence: None)
  Receive Date: 20120511
  Receipt Date: 20110921
  Transmission Date: 20120825
  Serious: No
  Sender: FDA-Public Use
  Company Number: US-GLAXOSMITHKLINE-A0899968A

PATIENT
  Age: 51 Year
  Sex: Female

DRUGS (1)
  1. TYKERB [Suspect]
     Indication: PRODUCT USED FOR UNKNOWN INDICATION
     Dosage: 1000MG PER DAY
     Route: 048
     Dates: start: 20101205

REACTIONS (11)
  - DRY THROAT [None]
  - HEADACHE [None]
  - RHINORRHOEA [None]
  - MUCOSAL INFLAMMATION [None]
  - FATIGUE [None]
  - RASH [None]
  - SKIN CHAPPED [None]
  - DRY SKIN [None]
  - PRURITUS [None]
  - NASAL CONGESTION [None]
  - HAIR TEXTURE ABNORMAL [None]
